FAERS Safety Report 18017453 (Version 1)
Quarter: 2020Q3

REPORT INFORMATION
  Report Type: Spontaneous
  Country: PL (occurrence: PL)
  Receive Date: 20200714
  Receipt Date: 20200714
  Transmission Date: 20201103
  Serious: Yes (Hospitalization)
  Sender: FDA-Public Use
  Company Number: PL-AUROBINDO-AUR-APL-2020-031865

PATIENT
  Age: 77 Year
  Sex: Female

DRUGS (5)
  1. METFORMIN [Concomitant]
     Active Substance: METFORMIN HYDROCHLORIDE
     Indication: TYPE 2 DIABETES MELLITUS
     Dosage: UNK,MANY YEARS BEFORE THE ADMISSION TO THE HOSPITAL
     Route: 065
  2. DABIGATRAN [Concomitant]
     Active Substance: DABIGATRAN
     Indication: PRODUCT USED FOR UNKNOWN INDICATION
     Dosage: UNK,MANY YEARS BEFORE THE ADMISSION TO THE HOSPITAL
     Route: 065
  3. GLIMEPIRIDE. [Suspect]
     Active Substance: GLIMEPIRIDE
     Indication: PRODUCT USED FOR UNKNOWN INDICATION
     Dosage: UNK FOR SEVERAL MONTHS BEFORE THE ADMISSION TO THE HOSPITAL
     Route: 065
  4. RAMIPRIL. [Concomitant]
     Active Substance: RAMIPRIL
     Indication: PRODUCT USED FOR UNKNOWN INDICATION
     Dosage: UNK,MANY YEARS BEFORE THE ADMISSION TO THE HOSPITAL
     Route: 065
  5. RAMIPRIL. [Suspect]
     Active Substance: RAMIPRIL
     Indication: HYPERTENSION
     Dosage: UNK,MANY YEARS BEFORE THE ADMISSION TO THE HOSPITAL
     Route: 065

REACTIONS (5)
  - Skin lesion [Recovered/Resolved]
  - Erythema [Unknown]
  - Pain [Recovered/Resolved]
  - Photosensitivity reaction [Recovered/Resolved]
  - Skin burning sensation [Recovered/Resolved]
